FAERS Safety Report 11819042 (Version 3)
Quarter: 2017Q2

REPORT INFORMATION
  Report Type: Spontaneous
  Country: US (occurrence: US)
  Receive Date: 20151210
  Receipt Date: 20170406
  Transmission Date: 20170829
  Serious: No
  Sender: FDA-Public Use
  Company Number: US-JNJFOC-20150703047

PATIENT
  Age: 15 Year
  Sex: Male

DRUGS (8)
  1. RISPERDAL [Suspect]
     Active Substance: RISPERIDONE
     Indication: AFFECT LABILITY
     Dosage: VARYING DOSES OF 0.25 MG, 0.5 MG, 1 MG, 1.5 MG AND 2 MG
     Route: 048
     Dates: start: 2014, end: 2015
  2. RISPERIDONE. [Suspect]
     Active Substance: RISPERIDONE
     Indication: PRODUCT USED FOR UNKNOWN INDICATION
     Route: 048
  3. RISPERDAL [Suspect]
     Active Substance: RISPERIDONE
     Indication: PERSONALITY CHANGE
     Dosage: VARYING DOSES OF 0.25 MG, 0.5 MG, 1 MG, AND 2 MG
     Route: 048
     Dates: start: 2006, end: 2014
  4. RISPERIDONE. [Suspect]
     Active Substance: RISPERIDONE
     Indication: PRODUCT USED FOR UNKNOWN INDICATION
     Route: 048
  5. RISPERDAL [Suspect]
     Active Substance: RISPERIDONE
     Indication: PERSONALITY CHANGE
     Dosage: VARYING DOSES OF 0.25 MG, 0.5 MG, 1 MG, 1.5 MG AND 2 MG
     Route: 048
     Dates: start: 2014, end: 2015
  6. RISPERDAL [Suspect]
     Active Substance: RISPERIDONE
     Indication: AFFECT LABILITY
     Dosage: VARYING DOSES OF 0.25 MG, 0.5 MG, 1 MG, AND 2 MG
     Route: 048
     Dates: start: 2006, end: 2014
  7. RISPERDAL [Suspect]
     Active Substance: RISPERIDONE
     Indication: AFFECTIVE DISORDER
     Dosage: VARYING DOSES OF 0.25 MG, 0.5 MG, 1 MG, AND 2 MG
     Route: 048
     Dates: start: 2006, end: 2014
  8. RISPERDAL [Suspect]
     Active Substance: RISPERIDONE
     Indication: AFFECTIVE DISORDER
     Dosage: VARYING DOSES OF 0.25 MG, 0.5 MG, 1 MG, 1.5 MG AND 2 MG
     Route: 048
     Dates: start: 2014, end: 2015

REACTIONS (6)
  - Hyperprolactinaemia [Unknown]
  - Increased appetite [Unknown]
  - Off label use [Unknown]
  - Product use in unapproved indication [Unknown]
  - Gynaecomastia [Unknown]
  - Obesity [Unknown]

NARRATIVE: CASE EVENT DATE: 2006
